FAERS Safety Report 16140543 (Version 2)
Quarter: 2020Q1

REPORT INFORMATION
  Report Type: Other
  Country: AU (occurrence: AU)
  Receive Date: 20190401
  Receipt Date: 20200203
  Transmission Date: 20200409
  Serious: Yes (Other)
  Sender: FDA-Public Use
  Company Number: AU-MACLEODS PHARMACEUTICALS US LTD-MAC2019020669

PATIENT

DRUGS (12)
  1. OLANZAPINE. [Suspect]
     Active Substance: OLANZAPINE
     Dosage: 10 MILLIGRAM, QD
     Route: 065
  2. CLONAZEPAM. [Concomitant]
     Active Substance: CLONAZEPAM
     Dosage: 1 MILLIGRAM, QD
     Route: 065
     Dates: start: 201812
  3. OLANZAPINE. [Suspect]
     Active Substance: OLANZAPINE
     Dosage: 20 MILLIGRAM, QD
     Route: 065
  4. CLOZARIL [Suspect]
     Active Substance: CLOZAPINE
     Dosage: 206.25 MILLIGRAM, TABLET
     Route: 048
     Dates: start: 20190702
  5. CLOZARIL [Suspect]
     Active Substance: CLOZAPINE
     Dosage: 300 MILLIGRAM, TABLET
     Route: 048
     Dates: start: 20181203
  6. CLOZARIL [Suspect]
     Active Substance: CLOZAPINE
     Dosage: UNK, TABLET
     Route: 048
     Dates: start: 20181205
  7. ARIPIPRAZOLE. [Suspect]
     Active Substance: ARIPIPRAZOLE
     Indication: SCHIZOPHRENIA
     Dosage: UNK, SUSPENSION FOR INJECTION
     Route: 065
  8. CLONAZEPAM. [Concomitant]
     Active Substance: CLONAZEPAM
     Dosage: 0.5 MILLIGRAM, QD
     Route: 065
     Dates: start: 201812
  9. OLANZAPINE. [Suspect]
     Active Substance: OLANZAPINE
     Indication: SCHIZOPHRENIA
     Dosage: UNK
     Route: 065
  10. OLANZAPINE. [Suspect]
     Active Substance: OLANZAPINE
     Dosage: 1 MILLIGRAM, BID
     Route: 065
     Dates: start: 201812
  11. CLOZARIL [Suspect]
     Active Substance: CLOZAPINE
     Indication: SCHIZOPHRENIA
     Dosage: 250 MILLIGRAM, QD
     Route: 048
     Dates: start: 20181211, end: 20181228
  12. CLONAZEPAM. [Concomitant]
     Active Substance: CLONAZEPAM
     Indication: PRODUCT USED FOR UNKNOWN INDICATION
     Dosage: 2 MILLIGRAM, BID
     Route: 065

REACTIONS (6)
  - Myocarditis [Recovering/Resolving]
  - Viral upper respiratory tract infection [Recovered/Resolved]
  - Drug ineffective [Unknown]
  - Mental impairment [Unknown]
  - C-reactive protein increased [Not Recovered/Not Resolved]
  - Red cell distribution width decreased [Not Recovered/Not Resolved]

NARRATIVE: CASE EVENT DATE: 2018
